FAERS Safety Report 7054122-X (Version None)
Quarter: 2010Q4

REPORT INFORMATION
  Report Type: 
  Country: None (occurrence: None)
  Receive Date: 20101020
  Receipt Date: 20101012
  Transmission Date: 20110411
  Serious: Yes (Other)
  Sender: FDA-Public Use
  Company Number: GB-TEVA-251019ISR

PATIENT
  Sex: Female
  Weight: 34.25 kg

DRUGS (2)
  1. METHOTREXATE [Suspect]
     Indication: POLYARTHRITIS
     Route: 048
     Dates: start: 20080201
  2. METHOTREXATE [Suspect]
     Route: 058

REACTIONS (3)
  - MENTAL DISORDER [None]
  - MOOD ALTERED [None]
  - SUICIDAL IDEATION [None]
